FAERS Safety Report 26212341 (Version 1)
Quarter: 2025Q4

REPORT INFORMATION
  Report Type: Spontaneous
  Country: US (occurrence: US)
  Receive Date: 20251230
  Receipt Date: 20251230
  Transmission Date: 20260117
  Serious: No
  Sender: MERCK SHARP & DOHME LLC
  Company Number: US-009507513-2364797

PATIENT
  Sex: Female
  Weight: 0.576 kg

DRUGS (23)
  1. SOTATERCEPT [Suspect]
     Active Substance: SOTATERCEPT
  2. SOTATERCEPT [Suspect]
     Active Substance: SOTATERCEPT
  3. SOTATERCEPT [Suspect]
     Active Substance: SOTATERCEPT
  4. SOTATERCEPT [Suspect]
     Active Substance: SOTATERCEPT
  5. ORENITRAM [Suspect]
     Active Substance: TREPROSTINIL
     Indication: Pulmonary arterial hypertension
     Dosage: THE PATIENT WAS SUPPLIED WITH ORENITRAM 2.5 MG, 0.25 MG, 1 MG AND 5 MG
     Route: 048
     Dates: start: 20240124
  6. ORENITRAM [Suspect]
     Active Substance: TREPROSTINIL
     Indication: Pulmonary arterial hypertension
     Dosage: TIME INTERVAL: 0.33333333 DAYS: THE CURRENT DOSE
     Route: 048
  7. FUROSEMIDE [Concomitant]
     Active Substance: FUROSEMIDE
  8. Migrelief (magnesium citrate, magnesium oxide, riboflavin, tanacetu... [Concomitant]
  9. Zyrtec (cetirizine hydrochloride [HCl]) [Concomitant]
  10. VITAMIN B12 [Concomitant]
     Active Substance: CYANOCOBALAMIN
  11. PROLIA [Concomitant]
     Active Substance: DENOSUMAB
  12. TADALAFIL [Concomitant]
     Active Substance: TADALAFIL
  13. VITAMIN C [Concomitant]
     Active Substance: ASCORBIC ACID
  14. OPSUMIT [Concomitant]
     Active Substance: MACITENTAN
  15. CYANOCOBALAMIN [Concomitant]
     Active Substance: CYANOCOBALAMIN
  16. POTASSIUM CHLORIDE [Concomitant]
     Active Substance: POTASSIUM CHLORIDE
  17. NURTEC ODT [Concomitant]
     Active Substance: RIMEGEPANT SULFATE
  18. CIMZIA [Concomitant]
     Active Substance: CERTOLIZUMAB PEGOL
  19. TUMS [Concomitant]
     Active Substance: CALCIUM CARBONATE
  20. OXYGEN [Concomitant]
     Active Substance: OXYGEN
  21. SPIRONOLACTONE [Concomitant]
     Active Substance: SPIRONOLACTONE
  22. PROBIOTICS NOS [Concomitant]
     Active Substance: PROBIOTICS NOS
  23. GABAPENTIN [Concomitant]
     Active Substance: GABAPENTIN

REACTIONS (1)
  - Headache [Unknown]
